FAERS Safety Report 5473254-0 (Version None)
Quarter: 2007Q4

REPORT INFORMATION
  Report Type: 
  Country: None (occurrence: None)
  Receive Date: 20071001
  Receipt Date: 20070921
  Transmission Date: 20080405
  Serious: Yes (Hospitalization, Other)
  Sender: FDA-Public Use
  Company Number: GB-ASTRAZENECA-2007GB01270

PATIENT
  Age: 679 Month
  Sex: Female

DRUGS (17)
  1. OMEPRAZOLE [Suspect]
     Indication: GASTRITIS
     Route: 048
     Dates: start: 20070201
  2. PREDNISOLONE [Concomitant]
  3. EPOGEN [Concomitant]
  4. ZINC [Concomitant]
  5. TRAMADOL HCL [Concomitant]
  6. BECOTIDE [Concomitant]
     Route: 055
  7. VITAMIN B-12 [Concomitant]
  8. CODEINE SUL TAB [Concomitant]
  9. LOPERAMIDE HCL [Concomitant]
  10. CALCICHEW [Concomitant]
  11. FUROSEMIDE [Concomitant]
  12. PRAVASTATIN [Concomitant]
  13. NOVOMIX [Concomitant]
  14. PANTOPRAZOLE SODIUM [Concomitant]
  15. PIRITON [Concomitant]
  16. SALBUTAMOL [Concomitant]
     Route: 055
  17. CODEINE PHOSPHATE [Concomitant]

REACTIONS (1)
  - LIVEDO RETICULARIS [None]
